FAERS Safety Report 16424508 (Version 1)
Quarter: 2019Q2

REPORT INFORMATION
  Report Type: Report from Study
  Country: CO (occurrence: CO)
  Receive Date: 20190613
  Receipt Date: 20190613
  Transmission Date: 20190711
  Serious: Yes (Hospitalization)
  Sender: FDA-Public Use
  Company Number: CO-BAYER-2019-113028

PATIENT
  Age: 62 Year
  Sex: Female

DRUGS (1)
  1. BETAFERON [Suspect]
     Active Substance: INTERFERON BETA-1B
     Indication: MULTIPLE SCLEROSIS
     Dosage: 1 ML, QOD
     Dates: start: 20141203

REACTIONS (1)
  - Cellulitis [Recovered/Resolved]

NARRATIVE: CASE EVENT DATE: 20190301
